FAERS Safety Report 6890923-6 (Version None)
Quarter: 2010Q3

REPORT INFORMATION
  Report Type: 
  Country: None (occurrence: None)
  Receive Date: 20100731
  Receipt Date: 20090414
  Transmission Date: 20110219
  Serious: Yes (Other)
  Sender: FDA-Public Use
  Company Number: US-PFIZER INC-2005169363

PATIENT
  Sex: Male
  Weight: 68 kg

DRUGS (4)
  1. LIPITOR [Suspect]
     Dosage: 10 MG, 1X/DAY
     Dates: end: 20050101
  2. LIPITOR [Suspect]
  3. LIPITOR [Suspect]
     Dosage: UNIT DOSE: UNKNOWN;
  4. TIMOLOL MALEATE [Concomitant]
     Dosage: UNK
     Route: 047

REACTIONS (10)
  - BLOOD CREATINE PHOSPHOKINASE INCREASED [None]
  - FATIGUE [None]
  - HIGH DENSITY LIPOPROTEIN DECREASED [None]
  - HYPOAESTHESIA [None]
  - HYPOTHYROIDISM [None]
  - MUSCULOSKELETAL STIFFNESS [None]
  - MYALGIA [None]
  - OEDEMA PERIPHERAL [None]
  - PAIN [None]
  - THYROID DISORDER [None]
